FAERS Safety Report 4857334-6 (Version None)
Quarter: 2005Q4

REPORT INFORMATION
  Report Type: 
  Country: None (occurrence: None)
  Receive Date: 20051219
  Receipt Date: 20050224
  Transmission Date: 20060501
  Serious: No
  Sender: FDA-Public Use
  Company Number: US-GLAXOSMITHKLINE-A0547080A

PATIENT
  Sex: Female

DRUGS (2)
  1. NICODERM CQ [Suspect]
  2. COMMIT [Suspect]
     Dates: start: 20050222

REACTIONS (6)
  - AGITATION [None]
  - INSOMNIA [None]
  - MALAISE [None]
  - NAUSEA [None]
  - NICOTINE DEPENDENCE [None]
  - RETCHING [None]
